FAERS Safety Report 12715074 (Version 1)
Quarter: 2016Q3

REPORT INFORMATION
  Report Type: Spontaneous
  Country: JP (occurrence: JP)
  Receive Date: 20160905
  Receipt Date: 20160905
  Transmission Date: 20161109
  Serious: Yes (Death, Other)
  Sender: FDA-Public Use
  Company Number: JP-ELI_LILLY_AND_COMPANY-JP201609000793

PATIENT
  Age: 81 Year
  Sex: Male

DRUGS (2)
  1. ERBITUX [Suspect]
     Active Substance: CETUXIMAB
     Dosage: 400 MG, WEEKLY (1/W)
     Route: 065
     Dates: start: 20160414, end: 20160521
  2. ERBITUX [Suspect]
     Active Substance: CETUXIMAB
     Indication: GINGIVAL CANCER
     Dosage: 660 MG, WEEKLY (1/W)
     Route: 065
     Dates: start: 20160407, end: 20160407

REACTIONS (5)
  - Interstitial lung disease [Fatal]
  - Staphylococcal infection [Unknown]
  - Paronychia [Unknown]
  - Hypomagnesaemia [Not Recovered/Not Resolved]
  - Dermatitis acneiform [Recovering/Resolving]

NARRATIVE: CASE EVENT DATE: 20160417
